FAERS Safety Report 13890602 (Version 3)
Quarter: 2017Q4

REPORT INFORMATION
  Report Type: Spontaneous
  Country: US (occurrence: US)
  Receive Date: 20170822
  Receipt Date: 20171110
  Transmission Date: 20180320
  Serious: Yes (Other)
  Sender: FDA-Public Use
  Company Number: US-BAYER-2017-153708

PATIENT
  Age: 84 Year
  Sex: Female

DRUGS (2)
  1. TYLENOL EXTRA STRENGTH [Concomitant]
     Active Substance: ACETAMINOPHEN
     Dosage: 500 MG, UNK
  2. CIPRO [Suspect]
     Active Substance: CIPROFLOXACIN HYDROCHLORIDE
     Indication: URINARY TRACT INFECTION
     Dosage: UNKNOWN
     Route: 048
     Dates: start: 20170623, end: 20170627

REACTIONS (7)
  - Peripheral swelling [Recovered/Resolved]
  - Pain [Not Recovered/Not Resolved]
  - Paralysis [None]
  - Swelling [None]
  - Tendon disorder [None]
  - Inflammation [None]
  - Adverse event [None]

NARRATIVE: CASE EVENT DATE: 20170628
